FAERS Safety Report 9004669 (Version 1)
Quarter: 2012Q4

REPORT INFORMATION
  Report Type: Spontaneous
  Country: US (occurrence: None)
  Receive Date: 20121018
  Receipt Date: 20121018
  Transmission Date: 20130627
  Serious: No
  Sender: FDA-Public Use
  Company Number: None

PATIENT
  Age: 53 Year
  Sex: Female
  Weight: 99.79 kg

DRUGS (6)
  1. ABILIFY [Suspect]
     Indication: BIPOLAR II DISORDER
     Dosage: 7 mg po qd
     Route: 048
     Dates: start: 20080617, end: 20120731
  2. QUETIAPINE FUMARATE [Suspect]
     Indication: BIPOLAR I DISORDER
     Dosage: 150 mg  po  qhs
     Route: 048
     Dates: start: 20120409
  3. SEROQUEL [Suspect]
     Indication: BIPOLAR II DISORDER
     Dosage: 200 m g po hs
     Route: 048
     Dates: start: 20050718, end: 20120409
  4. CLONAZEPAM [Concomitant]
  5. LAMICTAL [Concomitant]
  6. BYETTA [Concomitant]

REACTIONS (4)
  - Dyskinesia [None]
  - Withdrawal syndrome [None]
  - Tardive dyskinesia [None]
  - Product substitution issue [None]
